FAERS Safety Report 8895256 (Version 2)
Quarter: 2012Q4

REPORT INFORMATION
  Report Type: 
  Country: BR (occurrence: BR)
  Receive Date: 20121107
  Receipt Date: 20121114
  Transmission Date: 20130627
  Serious: Yes (Death, Other)
  Sender: FDA-Public Use
  Company Number: BR-PFIZER INC-2012277037

PATIENT
  Sex: Male

DRUGS (1)
  1. TORISEL [Suspect]
     Dosage: UNK
     Dates: end: 201209

REACTIONS (4)
  - Septic shock [Fatal]
  - Disease progression [Fatal]
  - Neoplasm malignant [Fatal]
  - Arrhythmia [Not Recovered/Not Resolved]
